FAERS Safety Report 8043273-9 (Version None)
Quarter: 2012Q1

REPORT INFORMATION
  Report Type: 
  Country: None (occurrence: None)
  Receive Date: 20120112
  Receipt Date: 20120105
  Transmission Date: 20120608
  Serious: Yes (Hospitalization)
  Sender: FDA-Public Use
  Company Number: US-GLAXOSMITHKLINE-A0889254A

PATIENT
  Age: 48 Year
  Sex: Female
  Weight: 125.9 kg

DRUGS (13)
  1. LIPITOR [Concomitant]
  2. ALBUTEROL [Concomitant]
  3. EFFEXOR [Concomitant]
  4. AVANDIA [Suspect]
     Indication: DIABETES MELLITUS
     Dosage: 4MG TWICE PER DAY
     Route: 048
     Dates: start: 20000101, end: 20090801
  5. PREMARIN [Concomitant]
  6. ACIPHEX [Concomitant]
  7. XOPENEX [Concomitant]
  8. INSULIN [Concomitant]
  9. TOPROL-XL [Concomitant]
  10. ATROVENT [Concomitant]
  11. NEURONTIN [Concomitant]
  12. FLEXERIL [Concomitant]
  13. ADVAIR DISKUS 100/50 [Concomitant]

REACTIONS (3)
  - CARDIAC FAILURE CONGESTIVE [None]
  - PALPITATIONS [None]
  - HEART RATE IRREGULAR [None]
